FAERS Safety Report 25765229 (Version 1)
Quarter: 2025Q3

REPORT INFORMATION
  Report Type: Spontaneous
  Country: CN (occurrence: CN)
  Receive Date: 20250905
  Receipt Date: 20250905
  Transmission Date: 20251020
  Serious: Yes (Other)
  Sender: RANBAXY
  Company Number: CN-SUN PHARMACEUTICAL INDUSTRIES LTD-2025R1-525579

PATIENT
  Age: 59 Year
  Sex: Male

DRUGS (5)
  1. PREDNISONE [Suspect]
     Active Substance: PREDNISONE
     Indication: Systemic infection
     Route: 048
  2. CYCLOSPORINE [Suspect]
     Active Substance: CYCLOSPORINE
     Indication: Systemic infection
     Route: 065
  3. PREDNISOLONE ACETATE [Concomitant]
     Active Substance: PREDNISOLONE ACETATE
     Indication: Viral corneal ulcer
     Dosage: 1 PERCENT, BID
     Route: 065
  4. TACROLIMUS [Concomitant]
     Active Substance: TACROLIMUS
     Indication: Viral corneal ulcer
     Route: 061
  5. GANCICLOVIR [Concomitant]
     Active Substance: GANCICLOVIR
     Indication: Viral corneal ulcer
     Dosage: 0.15 PERCENT, QD
     Route: 061

REACTIONS (3)
  - Disease progression [Unknown]
  - Condition aggravated [Unknown]
  - Hypopyon [Unknown]
